FAERS Safety Report 24091906 (Version 1)
Quarter: 2024Q3

REPORT INFORMATION
  Report Type: Spontaneous
  Country: US (occurrence: US)
  Receive Date: 20240715
  Receipt Date: 20240715
  Transmission Date: 20241017
  Serious: No
  Sender: ROCHE
  Company Number: US-ROCHE-3570905

PATIENT

DRUGS (2)
  1. ACTEMRA [Suspect]
     Active Substance: TOCILIZUMAB
     Indication: Product used for unknown indication
     Route: 058
     Dates: start: 20240510
  2. ACTEMRA [Suspect]
     Active Substance: TOCILIZUMAB

REACTIONS (6)
  - Product dose omission issue [Unknown]
  - Device malfunction [Unknown]
  - No adverse event [Unknown]
  - Wrong technique in product usage process [Unknown]
  - Wrong technique in product usage process [Unknown]
  - Product complaint [Unknown]

NARRATIVE: CASE EVENT DATE: 20240524
